FAERS Safety Report 6489858-2 (Version None)
Quarter: 2009Q4

REPORT INFORMATION
  Report Type: 
  Country: None (occurrence: None)
  Receive Date: 20091211
  Receipt Date: 20091202
  Transmission Date: 20100525
  Serious: Yes (Hospitalization, Other)
  Sender: FDA-Public Use
  Company Number: JP-ELI_LILLY_AND_COMPANY-JP200705006819

PATIENT
  Age: 65 Year
  Sex: Female
  Weight: 61 kg

DRUGS (8)
  1. HUMULIN 70/30 [Suspect]
     Indication: TYPE 2 DIABETES MELLITUS
     Dosage: 58 IU, DAILY (1/D)
     Route: 042
     Dates: start: 20011201
  2. HUMULIN 70/30 [Suspect]
     Dosage: 42 IU, DAILY (1/D)
     Route: 042
  3. HUMULIN 70/30 [Suspect]
     Dosage: 38 IU, DAILY (1/D)
     Route: 042
     Dates: end: 20030401
  4. HUMACART NPH [Suspect]
     Indication: TYPE 2 DIABETES MELLITUS
     Route: 058
     Dates: start: 20030401
  5. GLIBENCLAMIDE [Concomitant]
     Indication: TYPE 2 DIABETES MELLITUS
     Dosage: 5 MG, DAILY (1/D)
     Dates: start: 20000101
  6. VOGLIBOSE [Concomitant]
     Indication: TYPE 2 DIABETES MELLITUS
     Dosage: 0.9 MG, DAILY (1/D)
     Dates: start: 20000101
  7. METFORMIN HCL [Concomitant]
     Indication: TYPE 2 DIABETES MELLITUS
     Dosage: 750 MG, DAILY (1/D)
     Dates: start: 20000101
  8. NOVORAPID [Concomitant]
     Indication: TYPE 2 DIABETES MELLITUS
     Route: 058
     Dates: start: 20030401

REACTIONS (4)
  - ANTI-GAD ANTIBODY POSITIVE [None]
  - ANTI-INSULIN ANTIBODY POSITIVE [None]
  - IMPAIRED INSULIN SECRETION [None]
  - TYPE 1 DIABETES MELLITUS [None]
